FAERS Safety Report 22955293 (Version 3)
Quarter: 2025Q4

REPORT INFORMATION
  Report Type: Report from Study
  Country: CA (occurrence: CA)
  Receive Date: 20230918
  Receipt Date: 20251001
  Transmission Date: 20260118
  Serious: Yes (Other)
  Sender: SANDOZ
  Company Number: CA-SANDOZ-SDZ2023CA029222

PATIENT
  Sex: Male

DRUGS (1)
  1. HYRIMOZ [Suspect]
     Active Substance: ADALIMUMAB-ADAZ
     Indication: Ankylosing spondylitis
     Dosage: 40 MG Q. 2 WEEKS (Q2W) (HYRIMOZ 40 MG SOLUTION FOR INJECTION IN PRE-FILLED PEN)
     Route: 058
     Dates: start: 20220308

REACTIONS (3)
  - Ankylosing spondylitis [Recovering/Resolving]
  - Pain in extremity [Recovered/Resolved]
  - Weight increased [Unknown]
